FAERS Safety Report 7728615-3 (Version None)
Quarter: 2011Q3

REPORT INFORMATION
  Report Type: 
  Country: None (occurrence: None)
  Receive Date: 20110831
  Receipt Date: 20110831
  Transmission Date: 20111222
  Serious: Yes (Death)
  Sender: FDA-Public Use
  Company Number: None

PATIENT
  Age: 52 Year
  Sex: Female
  Weight: 88.905 kg

DRUGS (1)
  1. VALTREX [Suspect]
     Indication: HERPES SIMPLEX
     Dosage: 500MG 2XDY ORAL
     Route: 048
     Dates: start: 20110820

REACTIONS (7)
  - COLD SWEAT [None]
  - HERPES SIMPLEX [None]
  - FEELING ABNORMAL [None]
  - CONVULSION [None]
  - NAUSEA [None]
  - CARDIAC ARREST [None]
  - PNEUMONIA [None]
